FAERS Safety Report 6642154-2 (Version None)
Quarter: 2010Q1

REPORT INFORMATION
  Report Type: 
  Country: None (occurrence: None)
  Receive Date: 20100319
  Receipt Date: 20100318
  Transmission Date: 20100710
  Serious: Yes (Life-Threatening, Hospitalization)
  Sender: FDA-Public Use
  Company Number: DE-SANOFI-AVENTIS-2009SA009579

PATIENT
  Age: 52 Year
  Sex: Male
  Weight: 88 kg

DRUGS (6)
  1. OXALIPLATIN [Suspect]
     Route: 041
     Dates: start: 20091005, end: 20091005
  2. OXALIPLATIN [Suspect]
     Route: 041
     Dates: start: 20090316, end: 20090316
  3. FLUOROURACIL [Concomitant]
     Route: 041
     Dates: start: 20090316, end: 20090316
  4. FLUOROURACIL [Concomitant]
     Route: 041
     Dates: start: 20091005, end: 20091005
  5. FOLINIC ACID [Concomitant]
     Route: 041
     Dates: start: 20090316, end: 20090316
  6. FOLINIC ACID [Concomitant]
     Route: 041
     Dates: start: 20091005, end: 20091005

REACTIONS (8)
  - ANAEMIA HAEMOLYTIC AUTOIMMUNE [None]
  - BACK PAIN [None]
  - CHILLS [None]
  - CHROMATURIA [None]
  - CRUSH SYNDROME [None]
  - JAUNDICE [None]
  - RENAL FAILURE ACUTE [None]
  - RENAL PAIN [None]
